FAERS Safety Report 23259889 (Version 2)
Quarter: 2023Q4

REPORT INFORMATION
  Report Type: Spontaneous
  Country: US (occurrence: US)
  Receive Date: 20231204
  Receipt Date: 20231220
  Transmission Date: 20240110
  Serious: No
  Sender: FDA-Public Use
  Company Number: US-PFIZER INC-202300414798

PATIENT
  Age: 64 Year
  Sex: Female
  Weight: 47.166 kg

DRUGS (1)
  1. ESTRING [Suspect]
     Active Substance: ESTRADIOL
     Indication: Hysterectomy
     Dosage: UNK

REACTIONS (2)
  - Trichorrhexis [Unknown]
  - Off label use [Unknown]
